FAERS Safety Report 10770584 (Version 1)
Quarter: 2015Q1

REPORT INFORMATION
  Report Type: Spontaneous
  Country: US (occurrence: US)
  Receive Date: 20150206
  Receipt Date: 20150206
  Transmission Date: 20150721
  Serious: Yes (Hospitalization)
  Sender: FDA-Public Use
  Company Number: US-SA-2015SA013249

PATIENT
  Age: 76 Year
  Sex: Female

DRUGS (3)
  1. BEVACIZUMAB [Suspect]
     Active Substance: BEVACIZUMAB
     Indication: COLON CANCER METASTATIC
     Dosage: BEVACIZUMAB INFUSION
     Route: 065
  2. CAPECITABINE. [Concomitant]
     Active Substance: CAPECITABINE
     Indication: COLON CANCER METASTATIC
  3. OXALIPLATIN. [Suspect]
     Active Substance: OXALIPLATIN
     Indication: COLON CANCER METASTATIC
     Dosage: OXALIPLATIN INFUSION
     Route: 065

REACTIONS (23)
  - Nausea [Recovered/Resolved]
  - Platelet count decreased [Recovered/Resolved]
  - International normalised ratio increased [Recovered/Resolved]
  - Haematocrit decreased [Recovered/Resolved]
  - Acute kidney injury [Recovered/Resolved]
  - ADAMTS13 activity decreased [Recovered/Resolved]
  - Autoimmune haemolytic anaemia [Recovered/Resolved]
  - Haemoglobin decreased [Recovered/Resolved]
  - Activated partial thromboplastin time prolonged [Recovered/Resolved]
  - Haematemesis [Recovered/Resolved]
  - Haematochezia [Recovered/Resolved]
  - Blood lactate dehydrogenase increased [Recovered/Resolved]
  - Blood urea increased [Recovered/Resolved]
  - Blood creatinine increased [Recovered/Resolved]
  - Disseminated intravascular coagulation [Recovered/Resolved]
  - Prothrombin time prolonged [Recovered/Resolved]
  - Fibrin degradation products increased [Recovered/Resolved]
  - Haptoglobin decreased [Recovered/Resolved]
  - Blood fibrinogen decreased [Recovered/Resolved]
  - Abdominal pain [Recovered/Resolved]
  - Plasmin inhibitor decreased [Recovered/Resolved]
  - Hyperfibrinolysis [Recovered/Resolved]
  - Evans syndrome [Recovered/Resolved]
